FAERS Safety Report 7082945-X (Version None)
Quarter: 2010Q4

REPORT INFORMATION
  Report Type: 
  Country: None (occurrence: None)
  Receive Date: 20101026
  Receipt Date: 20100708
  Transmission Date: 20110411
  Serious: Yes (Hospitalization)
  Sender: FDA-Public Use
  Company Number: 2010-3556

PATIENT
  Age: 12 Year
  Sex: Male

DRUGS (9)
  1. INCRELEX [Suspect]
     Indication: INSULIN-LIKE GROWTH FACTOR DECREASED
     Dates: start: 20091012, end: 20091013
  2. CREON [Concomitant]
  3. UVESTEROL (UVERTEROL) [Concomitant]
  4. URSODIOL [Concomitant]
  5. BECONASE [Concomitant]
  6. OMEPRAZOLE [Concomitant]
  7. DEMORELLE (ALL OTHER THERAPEUTIC PRODUCTS) [Concomitant]
  8. RISPERDAL [Concomitant]
  9. PULMOZYME [Concomitant]

REACTIONS (2)
  - ABDOMINAL PAIN [None]
  - CONSTIPATION [None]
